FAERS Safety Report 12404620 (Version 4)
Quarter: 2018Q2

REPORT INFORMATION
  Report Type: Other
  Country: IT (occurrence: IT)
  Receive Date: 20160525
  Receipt Date: 20180522
  Transmission Date: 20180711
  Serious: Yes (Death, Other)
  Sender: FDA-Public Use
  Company Number: IT-ASTELLAS-2016US020373

PATIENT
  Age: 44 Year
  Sex: Male

DRUGS (11)
  1. AMBISOME [Suspect]
     Active Substance: AMPHOTERICIN B
     Indication: FUNGAL INFECTION
     Route: 065
  2. AMBISOME [Suspect]
     Active Substance: AMPHOTERICIN B
     Dosage: UNK, UNKNOWN FREQ.
     Route: 065
  3. POSACONAZOLE [Suspect]
     Active Substance: POSACONAZOLE
     Indication: FUSARIUM INFECTION
     Route: 065
  4. VORICONAZOLE. [Suspect]
     Active Substance: VORICONAZOLE
     Indication: FUNGAL INFECTION
     Route: 065
  5. CLOFARABINE. [Suspect]
     Active Substance: CLOFARABINE
     Indication: ACUTE MYELOID LEUKAEMIA
     Route: 065
  6. IDARUBICIN [Suspect]
     Active Substance: IDARUBICIN
     Indication: ACUTE MYELOID LEUKAEMIA
     Route: 065
  7. VORICONAZOLE. [Suspect]
     Active Substance: VORICONAZOLE
     Route: 065
  8. CYTARABINE. [Suspect]
     Active Substance: CYTARABINE
     Indication: ACUTE MYELOID LEUKAEMIA
     Route: 065
  9. CYTARABINE. [Suspect]
     Active Substance: CYTARABINE
     Dosage: UNK UNK, UNKNOWN FREQ.
     Route: 065
  10. DOXORUBICIN [Suspect]
     Active Substance: DOXORUBICIN
     Indication: ACUTE MYELOID LEUKAEMIA
     Route: 065
  11. CYTARABINE. [Suspect]
     Active Substance: CYTARABINE
     Route: 065

REACTIONS (5)
  - Fusarium infection [Fatal]
  - Neutropenia [Fatal]
  - Drug resistance [Fatal]
  - Disease progression [Fatal]
  - Drug ineffective [Fatal]
